FAERS Safety Report 5357202-X (Version None)
Quarter: 2007Q2

REPORT INFORMATION
  Report Type: 
  Country: None (occurrence: None)
  Receive Date: 20070614
  Receipt Date: 20070607
  Transmission Date: 20071010
  Serious: Yes (Life-Threatening, Hospitalization)
  Sender: FDA-Public Use
  Company Number: NL-JNJFOC-20070505613

PATIENT
  Age: 3 Year
  Sex: Female

DRUGS (4)
  1. EXTRA STRENGTH PARACETAMOL [Suspect]
  2. EXTRA STRENGTH PARACETAMOL [Suspect]
     Indication: PYREXIA
  3. PARACETAMOL [Suspect]
  4. PARACETAMOL [Suspect]
     Indication: PYREXIA
     Dosage: DOSE UNKNOWN

REACTIONS (3)
  - ACCIDENTAL OVERDOSE [None]
  - ACUTE HEPATIC FAILURE [None]
  - CONVULSION [None]
